FAERS Safety Report 6472575-2 (Version None)
Quarter: 2009Q4

REPORT INFORMATION
  Report Type: 
  Country: None (occurrence: None)
  Receive Date: 20091130
  Receipt Date: 20091110
  Transmission Date: 20100525
  Serious: Yes (Death, Other)
  Sender: FDA-Public Use
  Company Number: MPS1-1000273

PATIENT
  Age: 11 Year
  Sex: Male

DRUGS (3)
  1. ALDURAZYME [Suspect]
     Indication: MUCOPOLYSACCHARIDOSIS I
  2. ACETAMINOPHEN [Concomitant]
  3. DIPHENHYDRAMINE HCL [Concomitant]

REACTIONS (3)
  - CONVULSION [None]
  - FATIGUE [None]
  - INFUSION RELATED REACTION [None]
